FAERS Safety Report 5662302-0 (Version None)
Quarter: 2008Q1

REPORT INFORMATION
  Report Type: 
  Country: None (occurrence: None)
  Receive Date: 20080312
  Receipt Date: 20080229
  Transmission Date: 20080703
  Serious: Yes (Other)
  Sender: FDA-Public Use
  Company Number: FR-PFIZER INC-2008013139

PATIENT
  Sex: Male
  Weight: 65 kg

DRUGS (12)
  1. INSPRA [Suspect]
     Indication: MYOCARDIAL INFARCTION
     Route: 048
     Dates: start: 20071201, end: 20080101
  2. INSPRA [Suspect]
  3. TRIATEC [Concomitant]
     Indication: MYOCARDIAL INFARCTION
  4. TRIATEC [Concomitant]
     Route: 048
     Dates: start: 20080208, end: 20080201
  5. TRIATEC [Concomitant]
  6. NEXIUM [Concomitant]
     Indication: MYOCARDIAL INFARCTION
     Route: 048
  7. FLUINDIONE [Concomitant]
  8. PLAVIX [Concomitant]
     Indication: MYOCARDIAL INFARCTION
     Route: 048
  9. KARDEGIC [Concomitant]
     Indication: MYOCARDIAL INFARCTION
     Route: 048
  10. OMACOR [Concomitant]
     Indication: MYOCARDIAL INFARCTION
     Route: 048
  11. CARDENSIEL [Concomitant]
     Indication: MYOCARDIAL INFARCTION
     Route: 048
  12. TAHOR [Concomitant]
     Indication: MYOCARDIAL INFARCTION
     Route: 048

REACTIONS (1)
  - HYPOKALAEMIA [None]
